FAERS Safety Report 4455212-8 (Version None)
Quarter: 2004Q3

REPORT INFORMATION
  Report Type: 
  Country: None (occurrence: None)
  Receive Date: 20040830
  Receipt Date: 20040510
  Transmission Date: 20050211
  Serious: No
  Sender: FDA-Public Use
  Company Number: 206018

PATIENT
  Age: 13 Year
  Sex: Female
  Weight: 85 kg

DRUGS (8)
  1. XOLAIR [Suspect]
     Indication: ASTHMA
     Dosage: 375 MG, Q2W, SUBCUTANEOUS
     Route: 058
     Dates: start: 20040218
  2. ADVAIR DISKUS (SALMETEROL XINAFOATE, FLUTICASONE PROPIONATE [Concomitant]
  3. SINGULAIR [Concomitant]
  4. PREDNISONE [Concomitant]
  5. NEXIUM [Concomitant]
  6. ALLEGRA [Concomitant]
  7. NASONEX [Concomitant]
  8. PATANOL [Concomitant]

REACTIONS (1)
  - DERMATITIS [None]
